FAERS Safety Report 9901727 (Version 1)
Quarter: 2014Q1

REPORT INFORMATION
  Report Type: Spontaneous
  Country: GB (occurrence: GB)
  Receive Date: 20140217
  Receipt Date: 20140217
  Transmission Date: 20141002
  Serious: Yes (Other)
  Sender: FDA-Public Use
  Company Number: GB-GLAXOSMITHKLINE-B0967422A

PATIENT
  Sex: Male

DRUGS (1)
  1. NIQUITIN CQ GUM 2MG [Suspect]
     Indication: EX-TOBACCO USER
     Route: 002

REACTIONS (1)
  - Coeliac disease [Unknown]
